FAERS Safety Report 4765790-7 (Version None)
Quarter: 2005Q3

REPORT INFORMATION
  Report Type: 
  Country: None (occurrence: None)
  Receive Date: 20050906
  Receipt Date: 20050822
  Transmission Date: 20060218
  Serious: Yes (Death)
  Sender: FDA-Public Use
  Company Number: 2005115451

PATIENT
  Age: 73 Year
  Sex: Male

DRUGS (2)
  1. VFEND [Suspect]
     Indication: SYSTEMIC CANDIDA
     Dosage: 600 MG, ORAL
     Route: 048
     Dates: start: 20050809
  2. CIPROFLOXACIN HYDROCHLORIDE [Suspect]
     Indication: SYSTEMIC CANDIDA
     Dosage: 400 MG, INTRAVENOUS
     Route: 042
     Dates: start: 20050809

REACTIONS (5)
  - ACUTE MYELOID LEUKAEMIA [None]
  - CONDITION AGGRAVATED [None]
  - DIZZINESS [None]
  - TINNITUS [None]
  - VOMITING [None]
